FAERS Safety Report 24642895 (Version 1)
Quarter: 2024Q4

REPORT INFORMATION
  Report Type: Spontaneous
  Country: US (occurrence: None)
  Receive Date: 20241120
  Receipt Date: 20241120
  Transmission Date: 20250114
  Serious: Yes (Death)
  Sender: Public
  Company Number: None

PATIENT
  Age: 77 Year
  Sex: Female
  Weight: 69.52 kg

DRUGS (2)
  1. CYCLOSPORINE MODIFIED [Suspect]
     Active Substance: CYCLOSPORINE
     Indication: Renal transplant
     Dosage: 100 MG BID ORAL ?
     Route: 048
     Dates: start: 20230621, end: 20241026
  2. MYCOPHENOLATE SODIUM [Suspect]
     Active Substance: MYCOPHENOLATE SODIUM
     Indication: Renal transplant
     Dosage: FREQUENCY : TWICE A DAY;?
     Route: 048
     Dates: start: 20230621, end: 20241026

REACTIONS (2)
  - Neoplasm malignant [None]
  - Disease complication [None]

NARRATIVE: CASE EVENT DATE: 20241026
